FAERS Safety Report 8158376-8 (Version None)
Quarter: 2012Q1

REPORT INFORMATION
  Report Type: 
  Country: None (occurrence: None)
  Receive Date: 20120217
  Receipt Date: 20120202
  Transmission Date: 20120608
  Serious: Yes (Death)
  Sender: FDA-Public Use
  Company Number: 2012020082

PATIENT
  Age: 55 Year
  Sex: Male

DRUGS (6)
  1. CARISOPRODOL (CARISOPRODOL) [Suspect]
     Dosage: ORAL
     Route: 048
  2. MORPHINE [Suspect]
     Dosage: ORAL
     Route: 048
  3. ETHANOL (ETHANOL) [Suspect]
     Dosage: ORAL
     Route: 048
  4. PHENOBARBITAL TAB [Suspect]
     Dosage: ORAL
     Route: 048
  5. AMITRIPTYLINE HCL [Suspect]
     Dosage: ORAL
     Route: 048
  6. ACETAMINOPHEN AND HYDROCODONE BITARTRATE [Suspect]
     Dosage: ORAL
     Route: 048

REACTIONS (3)
  - CARDIAC ARREST [None]
  - RESPIRATORY ARREST [None]
  - DRUG ABUSE [None]
